FAERS Safety Report 17534951 (Version 7)
Quarter: 2021Q2

REPORT INFORMATION
  Report Type: Spontaneous
  Country: US (occurrence: US)
  Receive Date: 20200312
  Receipt Date: 20210420
  Transmission Date: 20210716
  Serious: No
  Sender: FDA-Public Use
  Company Number: US-AKCEA THERAPEUTICS-2019IS001590

PATIENT
  Age: 69 Year
  Sex: Female

DRUGS (5)
  1. ISSD (INTEGRATED SYRINGE SAFETY DEVICE) [Suspect]
     Active Substance: DEVICE
  2. TEGSEDI [Suspect]
     Active Substance: INOTERSEN SODIUM
     Indication: HEREDITARY NEUROPATHIC AMYLOIDOSIS
     Route: 058
     Dates: start: 20190404
  3. TEGSEDI [Suspect]
     Active Substance: INOTERSEN SODIUM
     Route: 058
     Dates: end: 20200806
  4. TEGSEDI [Suspect]
     Active Substance: INOTERSEN SODIUM
     Route: 058
  5. TEGSEDI [Suspect]
     Active Substance: INOTERSEN SODIUM
     Route: 058
     Dates: end: 20200727

REACTIONS (15)
  - White blood cells urine positive [Not Recovered/Not Resolved]
  - Urine abnormality [Unknown]
  - Urinary sediment present [Unknown]
  - Urine protein/creatinine ratio increased [Unknown]
  - Protein urine present [Not Recovered/Not Resolved]
  - Platelet count decreased [Not Recovered/Not Resolved]
  - Glomerular filtration rate decreased [Not Recovered/Not Resolved]
  - Blood creatinine increased [Not Recovered/Not Resolved]
  - Urinary casts [Not Recovered/Not Resolved]
  - Bacterial test positive [Unknown]
  - Crystal urine present [Unknown]
  - Platelet aggregation abnormal [Unknown]
  - Urine leukocyte esterase positive [Not Recovered/Not Resolved]
  - Red blood cells urine positive [Unknown]
  - Urine ketone body present [Not Recovered/Not Resolved]
